FAERS Safety Report 15057745 (Version 1)
Quarter: 2018Q2

REPORT INFORMATION
  Report Type: Report from Study
  Country: US (occurrence: US)
  Receive Date: 20180625
  Receipt Date: 20180625
  Transmission Date: 20180711
  Serious: No
  Sender: FDA-Public Use
  Company Number: US-ROCHE-2143601

PATIENT
  Sex: Male
  Weight: 108.96 kg

DRUGS (1)
  1. OCREVUS [Suspect]
     Active Substance: OCRELIZUMAB
     Indication: MULTIPLE SCLEROSIS
     Dosage: HALF DOSE INFUSION ;ONGOING: UNKNOWN
     Route: 042
     Dates: start: 201805

REACTIONS (2)
  - Herpes simplex test positive [Not Recovered/Not Resolved]
  - Food poisoning [Recovered/Resolved]
